FAERS Safety Report 19071694 (Version 1)
Quarter: 2021Q1

REPORT INFORMATION
  Report Type: Spontaneous
  Country: SE (occurrence: SE)
  Receive Date: 20210330
  Receipt Date: 20210330
  Transmission Date: 20210420
  Serious: Yes (Disabling)
  Sender: FDA-Public Use
  Company Number: SE-NOVOPROD-798037

PATIENT
  Age: 62 Year
  Sex: Male
  Weight: 85 kg

DRUGS (2)
  1. VICTOZA [Suspect]
     Active Substance: LIRAGLUTIDE
     Indication: TYPE 2 DIABETES MELLITUS
     Dosage: INJECTION, 1 TIME / DAY
     Route: 065
     Dates: start: 2015, end: 2020
  2. SYNJARDY [Concomitant]
     Active Substance: EMPAGLIFLOZIN\METFORMIN HYDROCHLORIDE
     Dosage: UNK
     Route: 065
     Dates: start: 2017

REACTIONS (6)
  - Bulimia nervosa [Recovered/Resolved]
  - Weight increased [Recovered/Resolved]
  - Hypersomnia [Recovered/Resolved]
  - Dyspepsia [Recovered/Resolved]
  - Food craving [Recovered/Resolved]
  - Vomiting [Recovered/Resolved]

NARRATIVE: CASE EVENT DATE: 2015
